FAERS Safety Report 5732252-X (Version None)
Quarter: 2008Q2

REPORT INFORMATION
  Report Type: 
  Country: None (occurrence: None)
  Receive Date: 20080508
  Receipt Date: 20080417
  Transmission Date: 20081010
  Serious: No
  Sender: FDA-Public Use
  Company Number: US-BOEHRINGER INGELHEIM GMBH, GERMANY-2008-BP-06167BP

PATIENT
  Sex: Male

DRUGS (7)
  1. ATROVENT HFA [Suspect]
     Indication: DYSPNOEA
     Route: 055
     Dates: start: 20060101
  2. ATROVENT HFA [Suspect]
     Indication: EXPOSURE TO CHEMICAL POLLUTION
  3. COMBIVENT [Suspect]
  4. ADVAIR HFA [Concomitant]
  5. SPIRIVA [Concomitant]
  6. XOPENEX [Concomitant]
  7. AMINOPHYLLINE [Concomitant]

REACTIONS (3)
  - BREATH ALCOHOL TEST POSITIVE [None]
  - DIZZINESS [None]
  - DYSPNOEA [None]
